FAERS Safety Report 4396973-6 (Version None)
Quarter: 2004Q3

REPORT INFORMATION
  Report Type: 
  Country: None (occurrence: None)
  Receive Date: 20040714
  Receipt Date: 20030311
  Transmission Date: 20050211
  Serious: Yes (Death, Hospitalization)
  Sender: FDA-Public Use
  Company Number: PHHO2003HU03294

PATIENT
  Age: 79 Year
  Sex: Female
  Weight: 50 kg

DRUGS (1)
  1. TAMOXIFEN CITRATE [Suspect]
     Dosage: 2.5 MG, UNK
     Route: 048
     Dates: start: 19980722

REACTIONS (4)
  - DISEASE PROGRESSION [None]
  - FALL [None]
  - HIP FRACTURE [None]
  - PULMONARY EMBOLISM [None]
